FAERS Safety Report 7417105-3 (Version None)
Quarter: 2011Q2

REPORT INFORMATION
  Report Type: 
  Country: None (occurrence: None)
  Receive Date: 20110415
  Receipt Date: 20110408
  Transmission Date: 20111010
  Serious: Yes (Other)
  Sender: FDA-Public Use
  Company Number: ES-B.I. PHARMACEUTICALS,INC./RIDGEFIELD-2011-ES-00089ES

PATIENT
  Age: 60 Year
  Sex: Male

DRUGS (1)
  1. MIRAPEXIN [Suspect]
     Indication: PARKINSON'S DISEASE
     Dosage: 0.7 MG
     Route: 048
     Dates: start: 20100301, end: 20100701

REACTIONS (3)
  - PATHOLOGICAL GAMBLING [None]
  - IMPULSE-CONTROL DISORDER [None]
  - SELF-INJURIOUS IDEATION [None]
